FAERS Safety Report 4446339-5 (Version None)
Quarter: 2004Q3

REPORT INFORMATION
  Report Type: 
  Country: None (occurrence: None)
  Receive Date: 20040910
  Receipt Date: 20040204
  Transmission Date: 20050211
  Serious: Yes (Life-Threatening, Hospitalization)
  Sender: FDA-Public Use
  Company Number: US-BRISTOL-MYERS SQUIBB COMPANY-12495438

PATIENT
  Age: 59 Year
  Sex: Male
  Weight: 82 kg

DRUGS (19)
  1. CISPLATIN [Suspect]
     Indication: MESOTHELIOMA
     Dosage: 1ST DOSE - 23DEC03
     Route: 042
     Dates: start: 20040113, end: 20040113
  2. PEMETREXED DISODIUM [Suspect]
     Indication: MESOTHELIOMA
     Dosage: 1ST DOSE- 23DEC03
     Route: 042
     Dates: start: 20040113, end: 20040113
  3. CIPRO [Concomitant]
     Indication: INFECTION
     Dates: end: 20040116
  4. DIFLUCAN [Concomitant]
  5. NEURONTIN [Concomitant]
     Indication: NEUROPATHIC PAIN
  6. WELLBUTRIN [Concomitant]
     Indication: DEPRESSION
  7. CELEXA [Concomitant]
     Indication: DEPRESSION
  8. OXYCODONE HCL [Concomitant]
     Indication: PAIN
  9. FLOMAX [Concomitant]
     Indication: BENIGN PROSTATIC HYPERPLASIA
  10. PACERONE [Concomitant]
     Indication: ARRHYTHMIA
     Dates: start: 20030301
  11. ZOFRAN [Concomitant]
     Indication: NAUSEA
  12. NEUPOGEN [Concomitant]
  13. LEVAQUIN [Concomitant]
     Dates: start: 20040116, end: 20040118
  14. AMBIEN [Concomitant]
     Indication: SLEEP DISORDER
  15. DIGOXIN [Concomitant]
     Indication: CARDIAC FAILURE CONGESTIVE
  16. COLACE [Concomitant]
     Indication: ABNORMAL FAECES
  17. FOLIC ACID [Concomitant]
     Indication: PROPHYLAXIS
     Dates: start: 20031204
  18. VITAMIN B-12 [Concomitant]
     Indication: PROPHYLAXIS
     Dates: start: 20031204
  19. AMIODARONE [Concomitant]
     Dates: start: 20030301

REACTIONS (4)
  - ASTHENIA [None]
  - ATRIAL FIBRILLATION [None]
  - CARDIAC FAILURE CONGESTIVE [None]
  - DEHYDRATION [None]
